FAERS Safety Report 9059884 (Version 1)
Quarter: 2013Q1

REPORT INFORMATION
  Report Type: Spontaneous
  Country: US (occurrence: US)
  Receive Date: 20130212
  Receipt Date: 20130212
  Transmission Date: 20140127
  Serious: No
  Sender: FDA-Public Use
  Company Number: US-PFIZER INC-2013051082

PATIENT
  Age: 55 Year
  Sex: Female

DRUGS (6)
  1. VIBRAMYCIN [Suspect]
     Dosage: UNK
  2. PYRIDIUM [Suspect]
     Dosage: UNK
  3. TRAZODONE HYDROCHLORIDE [Suspect]
     Dosage: UNK
  4. BACTRIM [Suspect]
     Dosage: UNK
  5. NOVOCAINE [Suspect]
     Dosage: UNK
  6. TALWIN [Suspect]
     Dosage: UNK

REACTIONS (1)
  - Drug hypersensitivity [Unknown]
